FAERS Safety Report 6515958-4 (Version None)
Quarter: 2009Q4

REPORT INFORMATION
  Report Type: 
  Country: None (occurrence: None)
  Receive Date: 20091223
  Receipt Date: 20090302
  Transmission Date: 20100525
  Serious: No
  Sender: FDA-Public Use
  Company Number: US-ABBOTT-09P-163-0560528-00

PATIENT
  Sex: Male
  Weight: 108.96 kg

DRUGS (9)
  1. LUPRON DEPOT [Suspect]
     Indication: PROSTATE CANCER
     Dosage: UNKNOWN
     Route: 050
     Dates: start: 20080925
  2. OMEPRAZOLE [Concomitant]
     Indication: GASTROOESOPHAGEAL REFLUX DISEASE
     Route: 048
  3. ATENOLOL [Concomitant]
     Indication: HYPERTENSION
     Route: 048
  4. LISINOPRIL [Concomitant]
     Indication: HYPERTENSION
  5. AGGRENOX [Concomitant]
     Indication: ANTICOAGULANT THERAPY
     Dosage: 25/200 MG, BID
     Route: 048
  6. ASPIRIN [Concomitant]
     Indication: ANTICOAGULANT THERAPY
  7. CRESTOR [Concomitant]
     Indication: BLOOD CHOLESTEROL INCREASED
     Route: 048
  8. CO Q10 [Concomitant]
     Indication: ARTHRALGIA
     Route: 048
  9. OXYCOD/PPAP [Concomitant]
     Indication: PAIN
     Dosage: 5-325 MG  AS NEEDED
     Route: 048

REACTIONS (3)
  - CELLULITIS [None]
  - RASH [None]
  - URTICARIA [None]
